FAERS Safety Report 19151866 (Version 6)
Quarter: 2023Q1

REPORT INFORMATION
  Report Type: Report from Study
  Country: US (occurrence: None)
  Receive Date: 20210419
  Receipt Date: 20230109
  Transmission Date: 20230417
  Serious: Yes (Hospitalization, Other)
  Sender: FDA-Public Use
  Company Number: US-ROCHE-2806993

PATIENT
  Age: 25 Year
  Sex: Male
  Weight: 88.2 kg

DRUGS (4)
  1. ATEZOLIZUMAB [Suspect]
     Active Substance: ATEZOLIZUMAB
     Indication: Adenocarcinoma of colon
     Dosage: CYCLE 13-25?ON 20/OCT/2020, HE RECEIVED LAST DOSE OF ATEZOLIZUMAB
     Route: 041
     Dates: start: 20200825
  2. FLUOROURACIL [Suspect]
     Active Substance: FLUOROURACIL
     Indication: Adenocarcinoma of colon
     Dosage: ON DAY 1 FOLLOWED BY 2400MG/M2 IV OVER 46 HOURS DAYS 1-3?ON 20-OCT-2020, HE RECEIVED LAST DOSE OF FL
     Route: 040
     Dates: start: 20200825
  3. LEUCOVORIN CALCIUM [Suspect]
     Active Substance: LEUCOVORIN CALCIUM
     Indication: Adenocarcinoma of colon
     Dosage: ON 20/OCT/2020, HE RECEIVED LAST DOSE OF CALCIUM FOLINATE
     Route: 042
     Dates: start: 20200825
  4. OXALIPLATIN [Suspect]
     Active Substance: OXALIPLATIN
     Indication: Adenocarcinoma of colon
     Dosage: ON 20/OCT/2020, HE RECEIVED LAST DOSE OF OXALIPLATIN 166 MG
     Route: 042
     Dates: start: 20200825

REACTIONS (3)
  - Hypoxia [Not Recovered/Not Resolved]
  - COVID-19 [Unknown]
  - Hypoxia [Unknown]

NARRATIVE: CASE EVENT DATE: 20201030
